FAERS Safety Report 8948494 (Version 2)
Quarter: 2013Q4

REPORT INFORMATION
  Report Type: Spontaneous
  Country: GB (occurrence: None)
  Receive Date: 20121123
  Receipt Date: 20131002
  Transmission Date: 20140711
  Serious: Yes (Other)
  Sender: FDA-Public Use
  Company Number: DSA_60950_2012

PATIENT
  Age: 37 Year
  Sex: Female

DRUGS (4)
  1. METRONIDAZOLE (METRONIDAZOLE) [Suspect]
     Indication: PRODUCT USED FOR UNKNOWN INDICATION
     Dosage: 400MG, 2 IN 1 D
     Dates: start: 20121026, end: 20121101
  2. YASMIN [Concomitant]
  3. LEVOTHYROXINE [Concomitant]
  4. TRIMETHOPRIM [Concomitant]

REACTIONS (6)
  - Hangover [None]
  - Thirst [None]
  - Tongue discolouration [None]
  - Rash [None]
  - Chromaturia [None]
  - Headache [None]
